FAERS Safety Report 5828929-8 (Version None)
Quarter: 2008Q3

REPORT INFORMATION
  Report Type: 
  Country: None (occurrence: None)
  Receive Date: 20080731
  Receipt Date: 20080722
  Transmission Date: 20090109
  Serious: Yes (Hospitalization)
  Sender: FDA-Public Use
  Company Number: JP-ROCHE-572895

PATIENT
  Sex: Male

DRUGS (2)
  1. TAMIFLU [Suspect]
     Route: 048
     Dates: start: 20080225, end: 20080226
  2. TAMIFLU [Suspect]
     Route: 048
     Dates: start: 20080224, end: 20080224

REACTIONS (1)
  - INTESTINAL ISCHAEMIA [None]
